FAERS Safety Report 6963217-8 (Version None)
Quarter: 2010Q3

REPORT INFORMATION
  Report Type: 
  Country: None (occurrence: None)
  Receive Date: 20100902
  Receipt Date: 20100827
  Transmission Date: 20110219
  Serious: Yes (Death)
  Sender: FDA-Public Use
  Company Number: US-ABBOTT-10P-163-0665872-00

PATIENT
  Sex: Female
  Weight: 54.48 kg

DRUGS (3)
  1. HUMIRA [Suspect]
     Indication: CROHN'S DISEASE
     Dates: start: 20100301, end: 20100519
  2. HUMIRA [Suspect]
     Indication: ANKYLOSING SPONDYLITIS
  3. METHOTREXATE [Concomitant]
     Indication: CROHN'S DISEASE

REACTIONS (1)
  - MULTIPLE DRUG OVERDOSE [None]
